FAERS Safety Report 6640415-4 (Version None)
Quarter: 2010Q1

REPORT INFORMATION
  Report Type: 
  Country: None (occurrence: None)
  Receive Date: 20100318
  Receipt Date: 20100308
  Transmission Date: 20100710
  Serious: Yes (Other)
  Sender: FDA-Public Use
  Company Number: DE-JNJFOC-20100204225

PATIENT
  Sex: Female
  Weight: 87 kg

DRUGS (4)
  1. REMICADE [Suspect]
     Indication: PSORIATIC ARTHROPATHY
     Route: 042
  2. INDOMETACIN [Concomitant]
     Indication: ARTHROPATHY
  3. ACETYLSALICYLIC ACID SRT [Concomitant]
  4. ISCOVER [Concomitant]

REACTIONS (3)
  - ANTINUCLEAR ANTIBODY POSITIVE [None]
  - ANTIPHOSPHOLIPID ANTIBODIES [None]
  - DRUG INEFFECTIVE [None]
